FAERS Safety Report 5190548-7 (Version None)
Quarter: 2006Q4

REPORT INFORMATION
  Report Type: 
  Country: None (occurrence: None)
  Receive Date: 20061222
  Receipt Date: 20060331
  Transmission Date: 20070319
  Serious: No
  Sender: FDA-Public Use
  Company Number: US-BRISTOL-MYERS SQUIBB COMPANY-13333158

PATIENT
  Age: 78 Year
  Sex: Female
  Weight: 51 kg

DRUGS (1)
  1. QUESTRAN [Suspect]
     Indication: DIARRHOEA
     Dates: start: 20060329, end: 20060331

REACTIONS (2)
  - ABDOMINAL PAIN UPPER [None]
  - DIARRHOEA [None]
